FAERS Safety Report 18724495 (Version 1)
Quarter: 2021Q1

REPORT INFORMATION
  Report Type: Spontaneous
  Country: GB (occurrence: GB)
  Receive Date: 20210111
  Receipt Date: 20210111
  Transmission Date: 20210419
  Serious: Yes (Other)
  Sender: FDA-Public Use
  Company Number: GB-PFIZER INC-2021001574

PATIENT
  Age: 79 Year
  Sex: Male

DRUGS (5)
  1. NOREPINEPHRINE BITARTRATE. [Suspect]
     Active Substance: NOREPINEPHRINE BITARTRATE
     Dosage: UNK
  2. INSULIN [Suspect]
     Active Substance: INSULIN NOS
     Dosage: UNK, 1600 UNITS/ HOUR, INFUSION
  3. NOREPINEPHRINE BITARTRATE. [Suspect]
     Active Substance: NOREPINEPHRINE BITARTRATE
     Dosage: UNK, 0.59 MG/KG/ HOUR
  4. INSULIN [Suspect]
     Active Substance: INSULIN NOS
     Dosage: UNK, 2 UNITS/KG/HOUR, INFUSION
  5. DOBUTAMINE [Suspect]
     Active Substance: DOBUTAMINE HYDROCHLORIDE
     Dosage: 5 MG/KG, HOUR

REACTIONS (2)
  - Hypoglycaemia [Unknown]
  - Hypokalaemia [Unknown]
